FAERS Safety Report 21280155 (Version 1)
Quarter: 2022Q3

REPORT INFORMATION
  Report Type: Spontaneous
  Country: US (occurrence: None)
  Receive Date: 20220831
  Receipt Date: 20220831
  Transmission Date: 20221026
  Serious: Yes (Life-Threatening, Hospitalization)
  Sender: FDA-Public Use
  Company Number: None

PATIENT
  Age: 13 Year
  Sex: Female
  Weight: 63 kg

DRUGS (1)
  1. SERTRALINE [Suspect]
     Active Substance: SERTRALINE HYDROCHLORIDE
     Indication: Obsessive-compulsive disorder
     Dates: start: 20180903, end: 20220307

REACTIONS (4)
  - Insomnia [None]
  - Suicidal behaviour [None]
  - Impulsive behaviour [None]
  - Irritability postvaccinal [None]

NARRATIVE: CASE EVENT DATE: 20200801
